FAERS Safety Report 6633327-3 (Version None)
Quarter: 2010Q1

REPORT INFORMATION
  Report Type: 
  Country: None (occurrence: None)
  Receive Date: 20100312
  Receipt Date: 20100310
  Transmission Date: 20100710
  Serious: Yes (Death, Life-Threatening, Hospitalization, Other)
  Sender: FDA-Public Use
  Company Number: JP-ROXANE LABORATORIES, INC.-2010-RO-00252RO

PATIENT
  Age: 87 Year
  Sex: Male
  Weight: 39 kg

DRUGS (5)
  1. DIGOXIN [Suspect]
     Indication: CARDIAC FAILURE CONGESTIVE
  2. DIGOXIN [Suspect]
     Indication: CORONARY ARTERY DISEASE
  3. FUROSEMIDE [Suspect]
     Indication: CARDIAC FAILURE CONGESTIVE
  4. FUROSEMIDE [Suspect]
     Indication: CORONARY ARTERY DISEASE
  5. LACTATED RINGER'S [Suspect]
     Indication: BLOOD SODIUM INCREASED

REACTIONS (9)
  - CONVULSION [None]
  - DEATH [None]
  - DEHYDRATION [None]
  - HYPERNATRAEMIA [None]
  - OSMOTIC DEMYELINATION SYNDROME [None]
  - RENAL FAILURE [None]
  - THERAPEUTIC AGENT TOXICITY [None]
  - UPPER RESPIRATORY TRACT INFECTION [None]
  - VOMITING [None]
